FAERS Safety Report 6788630-3 (Version None)
Quarter: 2010Q2

REPORT INFORMATION
  Report Type: 
  Country: None (occurrence: None)
  Receive Date: 20100623
  Receipt Date: 20080425
  Transmission Date: 20101027
  Serious: No
  Sender: FDA-Public Use
  Company Number: US-PFIZER INC-2008036371

PATIENT
  Sex: Female
  Weight: 61.818 kg

DRUGS (10)
  1. CADUET [Suspect]
     Indication: HYPERTENSION
     Dates: start: 20080405, end: 20080424
  2. CADUET [Suspect]
     Indication: BLOOD CHOLESTEROL INCREASED
  3. PREVACID [Concomitant]
  4. TOPROL-XL [Concomitant]
  5. DETROL LA [Concomitant]
  6. BENICAR [Concomitant]
  7. BUMEX [Concomitant]
  8. ESTROGENS [Concomitant]
  9. FOSAMAX [Concomitant]
  10. VITAMIN D [Concomitant]

REACTIONS (3)
  - ASTHENIA [None]
  - MUSCULAR WEAKNESS [None]
  - PAIN IN EXTREMITY [None]
